FAERS Safety Report 4812280-9 (Version None)
Quarter: 2005Q4

REPORT INFORMATION
  Report Type: 
  Country: None (occurrence: None)
  Receive Date: 20051027
  Receipt Date: 20051027
  Transmission Date: 20060501
  Serious: Yes (Other)
  Sender: FDA-Public Use
  Company Number: None

PATIENT
  Sex: Female
  Weight: 106.1417 kg

DRUGS (10)
  1. VENOFER [Suspect]
     Indication: IRON DEFICIENCY ANAEMIA
     Dosage: 300MG   ONCE WEEKLY   IV DRIP
     Route: 041
     Dates: start: 20051012, end: 20051026
  2. DRITROPAN XL [Concomitant]
  3. VASOTEC [Concomitant]
  4. ASPIRIN [Concomitant]
  5. CALCIUM GLUCONATE [Concomitant]
  6. HYDROCHLOROTHIAZIDE [Concomitant]
  7. METHIMAZOLE [Concomitant]
  8. VITAMIN E [Concomitant]
  9. ACTOS [Concomitant]
  10. GLUCOSAMINE CHONDROITIN [Concomitant]

REACTIONS (2)
  - BURNING SENSATION [None]
  - OEDEMA PERIPHERAL [None]
